FAERS Safety Report 5825918-4 (Version None)
Quarter: 2008Q3

REPORT INFORMATION
  Report Type: 
  Country: None (occurrence: None)
  Receive Date: 20080729
  Receipt Date: 20080722
  Transmission Date: 20090109
  Serious: Yes (Hospitalization)
  Sender: FDA-Public Use
  Company Number: PHHY2008DE14955

PATIENT
  Age: 27 Year
  Sex: Male

DRUGS (2)
  1. VOLTAREN [Suspect]
     Dosage: UNK
     Route: 048
  2. DOLORMIN [Concomitant]
     Indication: HEADACHE
     Dosage: UNK

REACTIONS (2)
  - ABDOMINAL PAIN [None]
  - RENAL FAILURE ACUTE [None]
